FAERS Safety Report 8892336 (Version 1)
Quarter: 2012Q4

REPORT INFORMATION
  Report Type: 
  Country: US (occurrence: US)
  Receive Date: 20121107
  Receipt Date: 20121107
  Transmission Date: 20130627
  Serious: No
  Sender: FDA-Public Use
  Company Number: US-AMGEN-USASP2011048639

PATIENT
  Age: 57 Year
  Sex: Female
  Weight: 56.24 kg

DRUGS (12)
  1. ENBREL [Suspect]
     Indication: PRODUCT USED FOR UNKNOWN INDICATION
     Dosage: 50 mg, qwk
     Route: 058
  2. ARAVA [Concomitant]
     Dosage: 10 mg, UNK
  3. LEXAPRO [Concomitant]
     Dosage: 5 mg, UNK
  4. LOVAZA [Concomitant]
     Dosage: 1 g, UNK
  5. NEURONTIN [Concomitant]
     Dosage: 100 mg, UNK
  6. MULTIPLE VITAMINS [Concomitant]
  7. VITAMIN C                          /00008001/ [Concomitant]
     Dosage: 250 mg, UNK
  8. VITAMIN D /00107901/ [Concomitant]
     Dosage: 400 UNK, UNK
  9. GLUCOSAMINE + CHONDROITIN          /01430901/ [Concomitant]
     Dosage: 500400 UNK, UNK
  10. CALCIUM [Concomitant]
     Dosage: 500 UNK, UNK
  11. SUPER B COMPLEX                    /01995301/ [Concomitant]
  12. RANITIDINE [Concomitant]
     Dosage: 150 mg, UNK

REACTIONS (4)
  - Headache [Unknown]
  - Pain in extremity [Unknown]
  - Rash [Unknown]
  - Productive cough [Unknown]
